FAERS Safety Report 4965908-7 (Version None)
Quarter: 2006Q2

REPORT INFORMATION
  Report Type: 
  Country: None (occurrence: None)
  Receive Date: 20060407
  Receipt Date: 20060119
  Transmission Date: 20061013
  Serious: Yes (Hospitalization, Other)
  Sender: FDA-Public Use
  Company Number: 2006UW00997

PATIENT
  Age: 38 Year
  Sex: Male
  Weight: 75 kg

DRUGS (4)
  1. TOPROL-XL [Suspect]
     Indication: HYPERTENSION
     Route: 048
  2. CRESTOR [Suspect]
     Indication: LOW DENSITY LIPOPROTEIN INCREASED
     Route: 048
     Dates: start: 20051031, end: 20060111
  3. BENICAR HCT [Concomitant]
     Indication: HYPERTENSION
     Dosage: 40/25
     Route: 048
     Dates: start: 20050630
  4. ASPIRIN [Concomitant]

REACTIONS (5)
  - BLOOD CREATINE PHOSPHOKINASE INCREASED [None]
  - DIABETES MELLITUS NON-INSULIN-DEPENDENT [None]
  - MEDULLARY THYROID CANCER [None]
  - MULTIPLE ENDOCRINE ADENOMATOSIS TYPE II [None]
  - MYALGIA [None]
